FAERS Safety Report 14075694 (Version 1)
Quarter: 2017Q4

REPORT INFORMATION
  Report Type: Report from Study
  Country: GB (occurrence: GB)
  Receive Date: 20171011
  Receipt Date: 20171011
  Transmission Date: 20180321
  Serious: Yes (Other)
  Sender: FDA-Public Use
  Company Number: GB-ROCHE-1922038

PATIENT

DRUGS (4)
  1. DIACETYLMORPHINE [Concomitant]
     Active Substance: DIAMORPHINE
     Indication: PAIN
     Route: 042
  2. HEPARIN [Suspect]
     Active Substance: HEPARIN SODIUM
     Indication: ACUTE MYOCARDIAL INFARCTION
     Dosage: 90 MINUTES AFTER FIRST BOLUS OF ALTEPLASE
     Route: 042
  3. ALTEPLASE. [Suspect]
     Active Substance: ALTEPLASE
     Indication: ACUTE MYOCARDIAL INFARCTION
     Route: 042
  4. ASPIRIN. [Suspect]
     Active Substance: ASPIRIN
     Indication: ACUTE MYOCARDIAL INFARCTION
     Route: 048

REACTIONS (5)
  - Ventricular tachycardia [Unknown]
  - Vessel puncture site haematoma [Unknown]
  - Ventricular fibrillation [Unknown]
  - Atrioventricular block complete [Unknown]
  - Contusion [Unknown]
